FAERS Safety Report 8076815-8 (Version None)
Quarter: 2011Q4

REPORT INFORMATION
  Report Type: 
  Country: None (occurrence: None)
  Receive Date: 20111221
  Receipt Date: 20101207
  Transmission Date: 20120403
  Serious: Yes (Hospitalization)
  Sender: FDA-Public Use
  Company Number: PHHY2009US6615

PATIENT
  Age: 77 Year
  Sex: Male

DRUGS (2)
  1. THALIDOMIDE [Concomitant]
  2. EXJADE [Suspect]
     Dosage: 1000 MG, QD, ORAL
     Route: 048

REACTIONS (3)
  - PRURITUS [None]
  - PARAESTHESIA [None]
  - RENAL FAILURE [None]
